FAERS Safety Report 9603722 (Version 2)
Quarter: 2013Q4

REPORT INFORMATION
  Report Type: Spontaneous
  Country: US (occurrence: US)
  Receive Date: 20131007
  Receipt Date: 20131007
  Transmission Date: 20140711
  Serious: Yes (Other)
  Sender: FDA-Public Use
  Company Number: US-RB-044720-12

PATIENT
  Age: 20 Year
  Sex: Female

DRUGS (5)
  1. SUBOXONE FILM [Suspect]
     Indication: DRUG DEPENDENCE
     Dosage: SUBOXONE FILM; THE PATIENT WAS CUTTING THE FILM AND TAKING 2-8 MG DAILY
     Route: 060
     Dates: end: 201206
  2. BUPRENORPHINE GENERIC [Suspect]
     Dosage: THE PATIENT WAS CUTTING THE TABLET AND TAKING 2-8 MG DAILY
     Route: 060
     Dates: start: 201206, end: 201208
  3. BUPRENORPHINE GENERIC [Suspect]
     Indication: DRUG DEPENDENCE
     Route: 060
     Dates: start: 201208, end: 20130412
  4. NICOTINE [Suspect]
     Indication: NICOTINE DEPENDENCE
     Dosage: DOSING: 1/3 PACK DAILY
     Route: 055
  5. PRENATAL VITAMINS [Concomitant]
     Indication: PREGNANCY
     Dosage: DOSING: 1 TABLET DAILY
     Route: 048

REACTIONS (6)
  - Substance abuse [Recovered/Resolved]
  - Wrong technique in drug usage process [Recovered/Resolved]
  - Maternal exposure during pregnancy [Recovered/Resolved]
  - Foetal distress syndrome [Recovered/Resolved]
  - Anaesthetic complication [Recovered/Resolved]
  - Pain [Recovered/Resolved]
